FAERS Safety Report 22085202 (Version 1)
Quarter: 2023Q1

REPORT INFORMATION
  Report Type: Spontaneous
  Country: CN (occurrence: CN)
  Receive Date: 20230310
  Receipt Date: 20230310
  Transmission Date: 20230418
  Serious: Yes (Hospitalization, Other)
  Sender: FDA-Public Use
  Company Number: CN-PFIZER INC-PV202300045521

PATIENT
  Age: 61 Year
  Sex: Female
  Weight: 50 kg

DRUGS (4)
  1. PAXLOVID [Suspect]
     Active Substance: NIRMATRELVIR\RITONAVIR
     Indication: Antiviral treatment
     Dosage: 400 MG, 2X/DAY
     Route: 048
     Dates: start: 20230112, end: 20230119
  2. OLUMIANT [Suspect]
     Active Substance: BARICITINIB
     Indication: Antiviral treatment
     Dosage: 4 MG, 1X/DAY
     Route: 048
     Dates: start: 20230112, end: 20230123
  3. SIVELESTAT SODIUM [Suspect]
     Active Substance: SIVELESTAT SODIUM
     Indication: Pulmonary fibrosis
     Dosage: 0.3 G, 1X/DAY
     Dates: start: 20230111, end: 20230116
  4. SODIUM CHLORIDE [Concomitant]
     Active Substance: SODIUM CHLORIDE
     Indication: Vehicle solution use
     Dosage: 50 ML, 1X/DAY
     Dates: start: 20230111, end: 20230116

REACTIONS (2)
  - Transaminases increased [Recovering/Resolving]
  - Incorrect product administration duration [Unknown]

NARRATIVE: CASE EVENT DATE: 20230124
